FAERS Safety Report 8438823-4 (Version None)
Quarter: 2012Q2

REPORT INFORMATION
  Report Type: 
  Country: None (occurrence: None)
  Receive Date: 20120606
  Receipt Date: 20120530
  Transmission Date: 20120825
  Serious: No
  Sender: FDA-Public Use
  Company Number: 2012SP029445

PATIENT
  Age: 46 Year
  Sex: Male

DRUGS (3)
  1. LITHIUM [Concomitant]
  2. BUSPAR [Concomitant]
  3. SAPHRIS [Suspect]
     Dates: start: 20120405

REACTIONS (3)
  - OEDEMA PERIPHERAL [None]
  - JOINT SWELLING [None]
  - DYSPNOEA [None]
